FAERS Safety Report 5136854-3 (Version None)
Quarter: 2006Q4

REPORT INFORMATION
  Report Type: 
  Country: None (occurrence: None)
  Receive Date: 20061023
  Receipt Date: 20061011
  Transmission Date: 20070319
  Serious: Yes (Hospitalization)
  Sender: FDA-Public Use
  Company Number: 2005113567

PATIENT
  Age: 33 Year
  Sex: Female

DRUGS (5)
  1. IRINOTECAN HCL [Suspect]
     Dosage: 320 MG, INTRAVENOUS
     Route: 042
     Dates: start: 20050523
  2. KYTRIL [Suspect]
     Dosage: (15 MG, CYCLICA), INTRAVENOUS
     Route: 042
     Dates: start: 20050523, end: 20050620
  3. FLUOROURACIL [Concomitant]
  4. GRANISETRON HYDROCHLORIDE (GRANISETRON HYDROCHLORIDE) [Concomitant]
  5. LEUCOVORIN CALCIUM [Concomitant]

REACTIONS (4)
  - CYTOLYTIC HEPATITIS [None]
  - GENERAL PHYSICAL HEALTH DETERIORATION [None]
  - HYPERTHERMIA [None]
  - INFLUENZA LIKE ILLNESS [None]
